FAERS Safety Report 18144811 (Version 1)
Quarter: 2020Q3

REPORT INFORMATION
  Report Type: Spontaneous
  Country: US (occurrence: US)
  Receive Date: 20200813
  Receipt Date: 20200813
  Transmission Date: 20201103
  Serious: Yes (Disabling)
  Sender: FDA-Public Use
  Company Number: None

PATIENT
  Age: 51 Year
  Sex: Female
  Weight: 51.75 kg

DRUGS (1)
  1. CIPRO [Suspect]
     Active Substance: CIPROFLOXACIN HYDROCHLORIDE
     Indication: DIVERTICULITIS
     Route: 048
     Dates: start: 20200410, end: 20200424

REACTIONS (5)
  - Arthralgia [None]
  - Peripheral swelling [None]
  - Gait disturbance [None]
  - Cardiac disorder [None]
  - Pain in extremity [None]

NARRATIVE: CASE EVENT DATE: 20200501
